FAERS Safety Report 11938917 (Version 2)
Quarter: 2016Q3

REPORT INFORMATION
  Report Type: Report from Study
  Country: US (occurrence: US)
  Receive Date: 20160122
  Receipt Date: 20160816
  Transmission Date: 20161109
  Serious: Yes (Hospitalization)
  Sender: FDA-Public Use
  Company Number: US-ASTRAZENECA-2015SF04655

PATIENT
  Age: 27693 Day
  Sex: Female

DRUGS (34)
  1. CULTURELLE [Concomitant]
     Active Substance: LACTOBACILLUS RHAMNOSUS
     Indication: GASTRITIS PROPHYLAXIS
     Dosage: QD
     Route: 048
  2. CARVEDILOL. [Concomitant]
     Active Substance: CARVEDILOL
     Indication: ATRIAL FIBRILLATION
     Route: 048
  3. HYDROCHLOROTHIAZIDE. [Concomitant]
     Active Substance: HYDROCHLOROTHIAZIDE
     Indication: HYPERTENSION
     Route: 048
     Dates: start: 20150415
  4. DRONABINOL. [Concomitant]
     Active Substance: DRONABINOL
     Indication: DECREASED APPETITE
     Route: 048
     Dates: start: 20150325
  5. BULTRANS [Concomitant]
     Indication: DECREASED APPETITE
     Dosage: 240 MCG/DAY; ONCE A WEEK
     Route: 003
     Dates: start: 20150819
  6. AZD6244 [Suspect]
     Active Substance: SELUMETINIB
     Indication: NON-SMALL CELL LUNG CANCER
     Dosage: 50 MG ORALLY BD ON DAY 1 AND DAY 4 OF EACH WEEK
     Route: 048
     Dates: start: 20150422, end: 20150428
  7. TAGRISSO [Suspect]
     Active Substance: OSIMERTINIB
     Indication: NON-SMALL CELL LUNG CANCER
     Route: 048
     Dates: start: 20150401, end: 20150915
  8. PRAVASTATIN. [Concomitant]
     Active Substance: PRAVASTATIN
     Indication: HYPERLIPIDAEMIA
     Route: 048
  9. HOMATROPINE-HYDROCODONE [Concomitant]
     Indication: COUGH
     Dosage: 1.5 MG EVERY 6 HRS AS NEEDED
     Route: 048
  10. PROCTOZONE HC [Concomitant]
     Active Substance: HYDROCORTISONE
     Indication: HAEMORRHOIDS
     Dosage: 1 APPLICATION AS NEEDED
     Route: 054
  11. DIPHENHYDRAMINA [Concomitant]
     Indication: MULTIPLE ALLERGIES
     Dosage: 25.0MG AS REQUIRED
     Route: 048
     Dates: start: 20150325
  12. MARINOL [Concomitant]
     Active Substance: DRONABINOL
     Indication: DECREASED APPETITE
     Dosage: PRN
     Route: 048
  13. DOCUSATE SODIUM. [Concomitant]
     Active Substance: DOCUSATE SODIUM
     Indication: DIARRHOEA
     Route: 048
  14. MEDIHONEY [Concomitant]
     Active Substance: HONEY
     Indication: SKIN ULCER
     Dosage: PRN
     Route: 003
     Dates: start: 20150415
  15. ZOFRAN [Concomitant]
     Active Substance: ONDANSETRON HYDROCHLORIDE
     Indication: NAUSEA
     Dosage: PRN
     Route: 048
  16. AZD6244 [Suspect]
     Active Substance: SELUMETINIB
     Indication: NON-SMALL CELL LUNG CANCER
     Dosage: 25 MG ORALLY BD ON DAY 1 AND DAY 4 OF EACH WEEK
     Route: 048
     Dates: start: 20150429, end: 20150430
  17. KERA CLARUS NAIL GEL [Concomitant]
     Indication: ONYCHOMYCOSIS
     Dosage: PRN
     Route: 003
     Dates: start: 20150330
  18. MEGACE [Concomitant]
     Active Substance: MEGESTROL ACETATE
     Indication: DECREASED APPETITE
     Route: 048
     Dates: start: 20150903, end: 201510
  19. CALTRATE 600 D [Concomitant]
     Indication: BONE DISORDER
     Dosage: BID
     Route: 048
  20. BREO ELLIPTA [Concomitant]
     Active Substance: FLUTICASONE FUROATE\VILANTEROL TRIFENATATE
     Indication: ASTHMA
     Dosage: 1 QD
     Route: 055
  21. OMEPRAZOLE. [Concomitant]
     Active Substance: OMEPRAZOLE
     Indication: GASTROOESOPHAGEAL REFLUX DISEASE
     Route: 048
  22. TAGRISSO [Suspect]
     Active Substance: OSIMERTINIB
     Indication: NON-SMALL CELL LUNG CANCER
     Route: 048
     Dates: start: 20150918, end: 20160301
  23. TUDORZA PRESSAIR [Concomitant]
     Active Substance: ACLIDINIUM BROMIDE
     Indication: ASTHMA
     Route: 055
  24. NYSTATIN. [Concomitant]
     Active Substance: NYSTATIN
     Indication: DRY MOUTH
     Dosage: 1 TEASPOON QID
     Route: 048
  25. MUPIROCIN. [Concomitant]
     Active Substance: MUPIROCIN
     Indication: INFECTION
     Dosage: PRN
     Route: 003
  26. COUMADIN [Concomitant]
     Active Substance: WARFARIN SODIUM
     Indication: ATRIAL FIBRILLATION
     Route: 048
  27. FLECAINIDE [Concomitant]
     Active Substance: FLECAINIDE
     Indication: ATRIAL FIBRILLATION
     Route: 048
  28. FERROUS SULFATE. [Concomitant]
     Active Substance: FERROUS SULFATE
     Indication: ANAEMIA
     Route: 048
     Dates: start: 20150528
  29. PROMETHAZINE [Concomitant]
     Active Substance: PROMETHAZINE\PROMETHAZINE HYDROCHLORIDE
     Indication: NAUSEA
     Dosage: PRN
     Route: 048
     Dates: start: 20150527
  30. OXYGEN. [Concomitant]
     Active Substance: OXYGEN
     Indication: DYSPNOEA
     Dosage: PRN
     Route: 055
     Dates: start: 20150403
  31. AZD6244 [Suspect]
     Active Substance: SELUMETINIB
     Indication: NON-SMALL CELL LUNG CANCER
     Dosage: 75 MG ORALLY BD ON DAY 1 AND DAY 4 OF EACH WEEK
     Route: 048
     Dates: start: 20150401, end: 20150407
  32. AMLODIPINE [Concomitant]
     Active Substance: AMLODIPINE BESYLATE
     Indication: HYPERTENSION
     Route: 048
  33. AZD6244 [Suspect]
     Active Substance: SELUMETINIB
     Indication: NON-SMALL CELL LUNG CANCER
     Dosage: 50 MG ORALLY QD ON DAY 1 AND DAY 4 OF EACH WEEK
     Route: 048
     Dates: start: 20150415, end: 20150421
  34. LOSARTAN. [Concomitant]
     Active Substance: LOSARTAN
     Indication: ATRIAL FIBRILLATION
     Route: 048

REACTIONS (1)
  - Pneumonia [Recovered/Resolved]

NARRATIVE: CASE EVENT DATE: 20151027
